FAERS Safety Report 13971110 (Version 3)
Quarter: 2019Q1

REPORT INFORMATION
  Report Type: Report from Study
  Country: US (occurrence: US)
  Receive Date: 20170914
  Receipt Date: 20190322
  Transmission Date: 20190417
  Serious: Yes (Death, Other)
  Sender: FDA-Public Use
  Company Number: US-ASTELLAS-2017US002255

PATIENT
  Age: 89 Year
  Sex: Male

DRUGS (1)
  1. ENZALUTAMIDE [Suspect]
     Active Substance: ENZALUTAMIDE
     Indication: HORMONE-REFRACTORY PROSTATE CANCER
     Route: 048
     Dates: start: 20150402, end: 20180602

REACTIONS (8)
  - Constipation [Unknown]
  - Back pain [Unknown]
  - Fatigue [Unknown]
  - Vertigo [Unknown]
  - Asthenia [Unknown]
  - Death [Fatal]
  - Bladder cancer [Unknown]
  - Rash [Unknown]

NARRATIVE: CASE EVENT DATE: 201612
